FAERS Safety Report 13484506 (Version 1)
Quarter: 2017Q2

REPORT INFORMATION
  Report Type: Spontaneous
  Country: US (occurrence: US)
  Receive Date: 20170426
  Receipt Date: 20170426
  Transmission Date: 20170830
  Serious: Yes (Other)
  Sender: FDA-Public Use
  Company Number: US-PFIZER INC-2016393290

PATIENT
  Age: 39 Year
  Sex: Male

DRUGS (10)
  1. INFLUENZA [Concomitant]
     Active Substance: INFLUENZA VIRUS VACCINE
  2. ZOFRAN [Concomitant]
     Active Substance: ONDANSETRON HYDROCHLORIDE
     Dosage: 4 MG, AS NEEDED (TAKE 1 TABLET BY MOUTH 3 TIMES DAILY)
     Route: 048
  3. SUTENT [Suspect]
     Active Substance: SUNITINIB MALATE
     Indication: NEUROENDOCRINE CARCINOMA
     Dosage: 37.5 MG, 1X/DAY (ONCE DAILY, 4 WEEKS ON, 2 WEEKS OFF)
     Route: 048
     Dates: start: 20161119
  4. SUTENT [Suspect]
     Active Substance: SUNITINIB MALATE
     Dosage: 37.5 MG, 1X/DAY (ONCE DAILY, 2 WEEKS ON, 2 WEEKS OFF)
     Route: 048
  5. PROBIOTIC [Concomitant]
     Active Substance: PROBIOTICS NOS
     Dosage: 2 DF, DAILY (TAKE 2 GUMMIES BY MOUTH DAILY)
     Route: 048
  6. TURMERIC [Concomitant]
     Active Substance: HERBALS\TURMERIC
     Dosage: 1 DF, 2X/DAY
     Route: 048
  7. GARLIC. [Concomitant]
     Active Substance: GARLIC
     Dosage: 1 DF, DAILY
     Route: 048
  8. MELATONIN [Concomitant]
     Active Substance: MELATONIN
     Dosage: 1 DF, AS NEEDED (TAKE 1 TABLET BY MOUTH NIGHTLY)
     Route: 048
  9. SANDOSTATIN [Concomitant]
     Active Substance: OCTREOTIDE ACETATE
     Indication: NEUROENDOCRINE CARCINOMA
     Dosage: 30 MG, UNK (EVERY 4 WEEKS)
     Route: 030
  10. OXYCODONE [Concomitant]
     Active Substance: OXYCODONE
     Dosage: 5 MG, AS NEEDED (TAKE 1 TABLET BY MOUTH EVERY 4 HOURS)
     Route: 048

REACTIONS (2)
  - Leukopenia [Recovered/Resolved]
  - Skin discolouration [Unknown]
